FAERS Safety Report 13521924 (Version 1)
Quarter: 2017Q2

REPORT INFORMATION
  Report Type: Spontaneous
  Country: US (occurrence: US)
  Receive Date: 20170505
  Receipt Date: 20170505
  Transmission Date: 20170830
  Serious: Yes (Other)
  Sender: FDA-Public Use
  Company Number: None

PATIENT
  Age: 40 Year
  Sex: Female

DRUGS (1)
  1. LUPRON [Suspect]
     Active Substance: LEUPROLIDE ACETATE
     Indication: ENDOMETRIOSIS
     Route: 030
     Dates: start: 20170127

REACTIONS (9)
  - Drug dose omission [None]
  - Coagulopathy [None]
  - Weight increased [None]
  - Confusional state [None]
  - Fatigue [None]
  - Abnormal dreams [None]
  - Anxiety [None]
  - Hunger [None]
  - Food craving [None]

NARRATIVE: CASE EVENT DATE: 20170324
